FAERS Safety Report 9531275 (Version 1)
Quarter: 2013Q3

REPORT INFORMATION
  Report Type: Spontaneous
  Country: US (occurrence: None)
  Receive Date: 20130916
  Receipt Date: 20130916
  Transmission Date: 20140515
  Serious: Yes (Disabling)
  Sender: FDA-Public Use
  Company Number: None

PATIENT
  Age: 68 Year
  Sex: Female
  Weight: 158.76 kg

DRUGS (1)
  1. BYDUREON [Suspect]
     Indication: TYPE 2 DIABETES MELLITUS
     Dosage: 2MG/VIAL GIVEN INTO/UNDER THE SKIN
     Route: 058
     Dates: start: 20130828, end: 20130912

REACTIONS (6)
  - Cough [None]
  - Oropharyngeal pain [None]
  - Dyspnoea [None]
  - Hypertension [None]
  - Dizziness [None]
  - Decreased activity [None]
